FAERS Safety Report 9333182 (Version 1)
Quarter: 2013Q2

REPORT INFORMATION
  Report Type: Spontaneous
  Country: US (occurrence: US)
  Receive Date: 20130606
  Receipt Date: 20130606
  Transmission Date: 20140414
  Serious: Yes (Hospitalization)
  Sender: FDA-Public Use
  Company Number: US-OPTIMER PHARMACEUTICALS, INC.-20120128

PATIENT
  Age: 38 Year
  Sex: Female
  Weight: 90.4 kg

DRUGS (2)
  1. DIFICID [Suspect]
     Indication: CLOSTRIDIUM DIFFICILE COLITIS
     Dosage: 200 MG, BID
     Route: 048
     Dates: start: 20120828, end: 20120902
  2. DIFICID [Suspect]
     Dosage: 200 MG, BID
     Route: 048
     Dates: start: 20120913, end: 20120917

REACTIONS (4)
  - Neutropenia [Recovering/Resolving]
  - Pyrexia [Recovering/Resolving]
  - Abdominal pain [Unknown]
  - Diarrhoea [Recovered/Resolved]
